FAERS Safety Report 11400189 (Version 1)
Quarter: 2015Q3

REPORT INFORMATION
  Report Type: Spontaneous
  Country: US (occurrence: US)
  Receive Date: 20150820
  Receipt Date: 20150820
  Transmission Date: 20151125
  Serious: Yes (Hospitalization)
  Sender: FDA-Public Use
  Company Number: US-ASTELLAS-2015US022602

PATIENT
  Sex: Male

DRUGS (4)
  1. DAKIN                              /00166003/ [Concomitant]
     Indication: FUSARIUM INFECTION
     Dosage: UNK, UNKNOWN FREQ.
     Route: 065
  2. AMBISOME [Suspect]
     Active Substance: AMPHOTERICIN B
     Indication: FUSARIUM INFECTION
     Route: 065
  3. VFEND [Suspect]
     Active Substance: VORICONAZOLE
     Indication: FUSARIUM INFECTION
     Route: 065
  4. VFEND [Suspect]
     Active Substance: VORICONAZOLE
     Route: 042

REACTIONS (1)
  - Oedema peripheral [Unknown]
